FAERS Safety Report 17220221 (Version 1)
Quarter: 2019Q4

REPORT INFORMATION
  Report Type: Spontaneous
  Country: US (occurrence: US)
  Receive Date: 20191231
  Receipt Date: 20191231
  Transmission Date: 20200122
  Serious: Yes (Death)
  Sender: FDA-Public Use
  Company Number: US-THERATECHNOLOGIES EUROPE LIMITED-2019-THE-IBA-000054

PATIENT
  Sex: Male

DRUGS (1)
  1. TROGARZO [Suspect]
     Active Substance: IBALIZUMAB-UIYK
     Indication: HIV INFECTION
     Dosage: UNK
     Route: 042
     Dates: end: 20191127

REACTIONS (4)
  - Castleman^s disease [Fatal]
  - Dizziness [Recovered/Resolved]
  - Product dose omission [Recovered/Resolved]
  - B-cell lymphoma [Fatal]
